FAERS Safety Report 12631937 (Version 2)
Quarter: 2016Q3

REPORT INFORMATION
  Report Type: Spontaneous
  Country: US (occurrence: US)
  Receive Date: 20160808
  Receipt Date: 20160808
  Transmission Date: 20161109
  Serious: No
  Sender: FDA-Public Use
  Company Number: US-BEH-2016061465

PATIENT
  Sex: Female
  Weight: 123 kg

DRUGS (6)
  1. BANOPHEN [Concomitant]
     Active Substance: DIPHENHYDRAMINE HYDROCHLORIDE
  2. EPIPEN [Concomitant]
     Active Substance: EPINEPHRINE
  3. TOPAMAX [Concomitant]
     Active Substance: TOPIRAMATE
  4. HIZENTRA [Suspect]
     Active Substance: HUMAN IMMUNOGLOBULIN G
     Indication: ENCEPHALITIS
     Route: 058
  5. L-M-X [Concomitant]
  6. HIZENTRA [Suspect]
     Active Substance: HUMAN IMMUNOGLOBULIN G
     Indication: ENCEPHALOMYELITIS
     Route: 058

REACTIONS (1)
  - Nasopharyngitis [Unknown]
